FAERS Safety Report 17825937 (Version 1)
Quarter: 2020Q2

REPORT INFORMATION
  Report Type: Spontaneous
  Country: US (occurrence: US)
  Receive Date: 20200526
  Receipt Date: 20200526
  Transmission Date: 20200714
  Serious: Yes (Hospitalization)
  Sender: FDA-Public Use
  Company Number: US-PFIZER INC-2020205476

PATIENT
  Age: 1 Day
  Sex: Male
  Weight: 1.81 kg

DRUGS (1)
  1. FENTANYL CITRATE. [Suspect]
     Active Substance: FENTANYL CITRATE
     Indication: ENDOTRACHEAL INTUBATION
     Dosage: 2 UG, SINGLE (2MCG IV; ONCE)
     Route: 042
     Dates: start: 20200519, end: 20200519

REACTIONS (3)
  - Product use issue [Unknown]
  - Off label use [Unknown]
  - Muscle rigidity [Unknown]

NARRATIVE: CASE EVENT DATE: 20200519
